FAERS Safety Report 4469683-4 (Version None)
Quarter: 2004Q4

REPORT INFORMATION
  Report Type: 
  Country: None (occurrence: None)
  Receive Date: 20041008
  Receipt Date: 20030605
  Transmission Date: 20050328
  Serious: Yes (Death, Hospitalization, Other)
  Sender: FDA-Public Use
  Company Number: US-MERCK-0306USA00712

PATIENT
  Age: 73 Year
  Sex: Male

DRUGS (1)
  1. VIOXX [Suspect]
     Route: 048

REACTIONS (20)
  - ABASIA [None]
  - ADVERSE EVENT [None]
  - ANGINA PECTORIS [None]
  - ARTHRITIS [None]
  - ARTHROPATHY [None]
  - BACK PAIN [None]
  - BENIGN LUNG NEOPLASM [None]
  - BLADDER DISORDER [None]
  - BLOOD PRESSURE INCREASED [None]
  - CARDIOVASCULAR DISORDER [None]
  - CAUDA EQUINA SYNDROME [None]
  - CONVULSION [None]
  - DEATH [None]
  - INTESTINAL FUNCTIONAL DISORDER [None]
  - KNEE OPERATION [None]
  - LUNG CYST BENIGN [None]
  - PARAPARESIS [None]
  - RADICULOPATHY [None]
  - SPONDYLOLISTHESIS ACQUIRED [None]
  - SPONDYLOSIS [None]
